FAERS Safety Report 5991988-6 (Version None)
Quarter: 2008Q4

REPORT INFORMATION
  Report Type: 
  Country: None (occurrence: None)
  Receive Date: 20081211
  Receipt Date: 20081202
  Transmission Date: 20090506
  Serious: No
  Sender: FDA-Public Use
  Company Number: US-B.I. PHARMACEUTICALS,INC./RIDGEFIELD-2008-BP-17209BP

PATIENT
  Sex: Male

DRUGS (3)
  1. MIRAPEX [Suspect]
     Indication: RESTLESS LEGS SYNDROME
     Dosage: .375MG
     Route: 048
     Dates: start: 20060101
  2. VERAPAMIL [Concomitant]
     Indication: CLUSTER HEADACHE
     Dosage: 180MG
     Route: 048
     Dates: start: 20060101
  3. TOPAMAX [Concomitant]
     Indication: CLUSTER HEADACHE
     Route: 048
     Dates: start: 20081001

REACTIONS (1)
  - DYSKINESIA [None]
